FAERS Safety Report 18142998 (Version 1)
Quarter: 2020Q3

REPORT INFORMATION
  Report Type: Spontaneous
  Country: US (occurrence: US)
  Receive Date: 20200812
  Receipt Date: 20200812
  Transmission Date: 20201103
  Serious: No
  Sender: FDA-Public Use
  Company Number: NVSC2020US217468

PATIENT
  Age: 60 Year
  Sex: Male

DRUGS (2)
  1. ZOFRAN [Suspect]
     Active Substance: ONDANSETRON HYDROCHLORIDE
     Indication: NAUSEA
     Route: 065
  2. CABOMETYX [Suspect]
     Active Substance: CABOZANTINIB S-MALATE
     Indication: PROSTATE CANCER
     Dosage: 40 MG, QD
     Route: 065
     Dates: start: 20200413

REACTIONS (9)
  - Flatulence [Recovered/Resolved]
  - Skin fissures [Unknown]
  - Fatigue [Unknown]
  - Abdominal discomfort [Unknown]
  - Ejection fraction decreased [Unknown]
  - Sunburn [Recovered/Resolved]
  - Gastrointestinal motility disorder [Unknown]
  - Asthenia [Unknown]
  - Nausea [Recovered/Resolved]
